FAERS Safety Report 5076492-4 (Version None)
Quarter: 2006Q3

REPORT INFORMATION
  Report Type: 
  Country: None (occurrence: None)
  Receive Date: 20060810
  Receipt Date: 20060802
  Transmission Date: 20061208
  Serious: Yes (Death, Life-Threatening, Hospitalization)
  Sender: FDA-Public Use
  Company Number: US-JNJFOC-20060403117

PATIENT
  Sex: Female
  Weight: 52.8 kg

DRUGS (27)
  1. DOXIL [Suspect]
     Indication: T-CELL LYMPHOMA
     Route: 042
  2. CYCLOPHOSPHAMIDE [Suspect]
     Route: 042
  3. CYCLOPHOSPHAMIDE [Suspect]
     Indication: T-CELL LYMPHOMA
     Route: 042
  4. VINCRISTINE [Suspect]
     Indication: T-CELL LYMPHOMA
     Route: 042
  5. DECADRON [Suspect]
     Indication: T-CELL LYMPHOMA
     Route: 048
  6. METHOTREXATE [Suspect]
     Route: 042
  7. METHOTREXATE [Suspect]
     Indication: T-CELL LYMPHOMA
     Route: 042
  8. ARA-C [Suspect]
     Indication: T-CELL LYMPHOMA
     Route: 042
  9. LEUCOVORIN CALCIUM [Suspect]
     Route: 048
  10. LEUCOVORIN CALCIUM [Suspect]
     Indication: T-CELL LYMPHOMA
     Route: 048
  11. MESNA [Suspect]
     Indication: T-CELL LYMPHOMA
     Route: 042
  12. FLUCONAZOLE [Concomitant]
     Route: 048
  13. CIPROFLOXACIN [Concomitant]
     Route: 048
  14. NEUPOGEN [Concomitant]
     Indication: T-CELL LYMPHOMA
     Route: 058
  15. PROTONIX [Concomitant]
  16. ACYCLOVIR [Concomitant]
  17. LOTREL [Concomitant]
  18. AMBIEN [Concomitant]
  19. COMPAZINE [Concomitant]
  20. DARVON [Concomitant]
  21. VALTREX [Concomitant]
  22. ZOFRAN [Concomitant]
     Route: 042
  23. SODIUM ACETATE [Concomitant]
     Route: 042
  24. SODIUM BICARBONATE [Concomitant]
     Route: 048
  25. PREDNISOLONE ACETATE [Concomitant]
     Route: 047
  26. AMBIEN [Concomitant]
     Indication: INSOMNIA
     Route: 048
  27. COMPAZINE [Concomitant]
     Indication: NAUSEA
     Route: 048

REACTIONS (5)
  - ACUTE RESPIRATORY FAILURE [None]
  - ATRIAL FIBRILLATION [None]
  - CYTOMEGALOVIRUS ANTIGEN POSITIVE [None]
  - PNEUMONIA [None]
  - PULMONARY OEDEMA [None]
